FAERS Safety Report 4978006-3 (Version None)
Quarter: 2006Q2

REPORT INFORMATION
  Report Type: 
  Country: None (occurrence: None)
  Receive Date: 20060420
  Receipt Date: 20050912
  Transmission Date: 20061013
  Serious: Yes (Hospitalization, Disabling)
  Sender: FDA-Public Use
  Company Number: US-MERCK-0509USA01554

PATIENT
  Age: 47 Year
  Sex: Female
  Weight: 66 kg

DRUGS (7)
  1. VIOXX [Suspect]
     Indication: BACK PAIN
     Route: 048
     Dates: start: 20000401, end: 20001028
  2. VIOXX [Suspect]
     Indication: BONE PAIN
     Route: 048
     Dates: start: 20000401, end: 20001028
  3. VICODIN [Concomitant]
     Route: 065
  4. VISTARIL [Concomitant]
     Route: 065
  5. XANAX [Concomitant]
     Route: 065
  6. CELEXA [Concomitant]
     Route: 065
  7. ESTRACE [Concomitant]
     Route: 065

REACTIONS (21)
  - ABDOMINAL PAIN UPPER [None]
  - ARTHRALGIA [None]
  - ASTHENIA [None]
  - CARDIAC FLUTTER [None]
  - CARPAL TUNNEL DECOMPRESSION [None]
  - CHEST PAIN [None]
  - DYSPEPSIA [None]
  - DYSPNOEA [None]
  - GALLBLADDER DISORDER [None]
  - GASTRITIS [None]
  - GASTRITIS EROSIVE [None]
  - GASTROINTESTINAL PAIN [None]
  - HAEMATOCHEZIA [None]
  - HEADACHE [None]
  - INJURY [None]
  - LIMB INJURY [None]
  - MUSCLE SPASMS [None]
  - PALPITATIONS [None]
  - ROAD TRAFFIC ACCIDENT [None]
  - SPINAL DISORDER [None]
  - THYROID DISORDER [None]
